FAERS Safety Report 8045156-7 (Version None)
Quarter: 2012Q1

REPORT INFORMATION
  Report Type: 
  Country: None (occurrence: None)
  Receive Date: 20120113
  Receipt Date: 20110630
  Transmission Date: 20120608
  Serious: Yes (Hospitalization, Other)
  Sender: FDA-Public Use
  Company Number: BE-ASTRAZENECA-2011SE27686

PATIENT
  Age: 60 Year
  Sex: Male

DRUGS (3)
  1. SEROQUEL XR [Suspect]
     Route: 048
  2. SEROQUEL XR [Suspect]
     Indication: SCHIZOPHRENIA
     Route: 048
     Dates: start: 20110401
  3. SEROQUEL XR [Suspect]
     Route: 048

REACTIONS (4)
  - SOMNOLENCE [None]
  - RASH [None]
  - PRURITUS [None]
  - MENTAL IMPAIRMENT [None]
